FAERS Safety Report 5112978-1 (Version None)
Quarter: 2006Q3

REPORT INFORMATION
  Report Type: 
  Country: None (occurrence: None)
  Receive Date: 20060921
  Receipt Date: 20060921
  Transmission Date: 20061208
  Serious: No
  Sender: FDA-Public Use
  Company Number: None

PATIENT
  Sex: Male
  Weight: 66.6788 kg

DRUGS (7)
  1. DRONABINOL [Suspect]
     Indication: DECREASED APPETITE
     Dosage: 5 MG BID PO
     Route: 048
     Dates: start: 20060622, end: 20060726
  2. DRONABINOL [Suspect]
     Indication: NAUSEA
     Dosage: 5 MG BID PO
     Route: 048
     Dates: start: 20060622, end: 20060726
  3. HYDROCODONE 5/ACETAMINOPHEN [Concomitant]
  4. HYDROXYZINE PAMOATE [Concomitant]
  5. PROMETHAZINE [Concomitant]
  6. TEMAZEPAM [Concomitant]
  7. VENLAFAXINE HCL EXTENDED-RELEASE [Concomitant]

REACTIONS (3)
  - ORAL SOFT TISSUE DISORDER [None]
  - RASH GENERALISED [None]
  - URTICARIA [None]
